FAERS Safety Report 6708589-4 (Version None)
Quarter: 2010Q2

REPORT INFORMATION
  Report Type: 
  Country: None (occurrence: None)
  Receive Date: 20100503
  Receipt Date: 20100420
  Transmission Date: 20101027
  Serious: Yes (Other)
  Sender: FDA-Public Use
  Company Number: NL-MEDIMMUNE-MEDI-0011145

PATIENT
  Sex: Male

DRUGS (2)
  1. SYNAGIS [Suspect]
     Route: 030
     Dates: start: 20090928, end: 20100128
  2. SYNAGIS [Suspect]
     Route: 030
     Dates: start: 20100226, end: 20100420

REACTIONS (1)
  - MIDDLE EAR EFFUSION [None]
